FAERS Safety Report 10341525 (Version 1)
Quarter: 2014Q3

REPORT INFORMATION
  Report Type: Spontaneous
  Country: US (occurrence: None)
  Receive Date: 20140724
  Receipt Date: 20140724
  Transmission Date: 20150326
  Serious: Yes (Life-Threatening)
  Sender: FDA-Public Use
  Company Number: None

PATIENT
  Age: 70 Year
  Sex: Male
  Weight: 86.18 kg

DRUGS (10)
  1. PRIVIGEN [Suspect]
     Active Substance: HUMAN IMMUNOGLOBULIN G
     Indication: TOXIC NEUROPATHY
     Dosage: 40GM X 2 DAYS INTRAVENOUS
     Route: 042
     Dates: start: 20140421, end: 20140521
  2. PACLITAXEL. [Concomitant]
     Active Substance: PACLITAXEL
  3. CARBOPLATIN. [Concomitant]
     Active Substance: CARBOPLATIN
  4. MULTIVITAMIN [Concomitant]
     Active Substance: VITAMINS
  5. DIOVAN [Concomitant]
     Active Substance: VALSARTAN
  6. PRIVIGEN [Suspect]
     Active Substance: HUMAN IMMUNOGLOBULIN G
     Indication: INFLAMMATION
     Dosage: 40GM X 2 DAYS INTRAVENOUS
     Route: 042
     Dates: start: 20140421, end: 20140521
  7. SYNTHROID [Concomitant]
     Active Substance: LEVOTHYROXINE SODIUM
  8. ASPIRIN. [Concomitant]
     Active Substance: ASPIRIN
  9. ISOSORBIDE [Concomitant]
     Active Substance: ISOSORBIDE
  10. FINASTERIDE. [Concomitant]
     Active Substance: FINASTERIDE

REACTIONS (1)
  - Deep vein thrombosis [None]

NARRATIVE: CASE EVENT DATE: 20140521
